FAERS Safety Report 9473349 (Version 1)
Quarter: 2013Q3

REPORT INFORMATION
  Report Type: Spontaneous
  Country: US (occurrence: US)
  Receive Date: 20130823
  Receipt Date: 20130823
  Transmission Date: 20140515
  Serious: No
  Sender: FDA-Public Use
  Company Number: US-BRISTOL-MYERS SQUIBB COMPANY-18905406

PATIENT
  Age: 61 Year
  Sex: Male

DRUGS (1)
  1. SPRYCEL [Suspect]
     Dosage: DOSE CHANGED TO 1 IN EVERY 2 DAYS, THEN CHANGED TO 300MG/WK, THEN STOPPED
     Dates: start: 201211

REACTIONS (2)
  - Aphthous stomatitis [Recovering/Resolving]
  - Arthritis [Unknown]
